FAERS Safety Report 4457446-5 (Version None)
Quarter: 2004Q3

REPORT INFORMATION
  Report Type: 
  Country: None (occurrence: None)
  Receive Date: 20040922
  Receipt Date: 20040917
  Transmission Date: 20050211
  Serious: Yes (Hospitalization)
  Sender: FDA-Public Use
  Company Number: ENTC2004-0167

PATIENT
  Age: 87 Year
  Sex: Male
  Weight: 60.77 kg

DRUGS (4)
  1. STALEVO 100 [Suspect]
     Indication: TREMOR
     Dosage: 50 MG/12, 5 MG/2000 MG TID, ORAL
     Route: 048
     Dates: start: 20040510, end: 20040816
  2. ARTANE [Concomitant]
  3. ZESTRIL [Concomitant]
  4. ASPIRIN [Concomitant]

REACTIONS (2)
  - DEHYDRATION [None]
  - DIARRHOEA [None]
